FAERS Safety Report 6117212-1 (Version None)
Quarter: 2009Q1

REPORT INFORMATION
  Report Type: 
  Country: None (occurrence: None)
  Receive Date: 20090314
  Receipt Date: 20090109
  Transmission Date: 20090719
  Serious: No
  Sender: FDA-Public Use
  Company Number: US-ABBOTT-09P-163-0496952-00

PATIENT
  Sex: Female
  Weight: 75.818 kg

DRUGS (6)
  1. HUMIRA [Suspect]
     Indication: CROHN'S DISEASE
     Route: 058
     Dates: start: 20081120
  2. FERROUS SULFATE TAB [Concomitant]
     Indication: DRUG USE FOR UNKNOWN INDICATION
  3. MULTI-VITAMIN [Concomitant]
     Indication: DRUG USE FOR UNKNOWN INDICATION
  4. UNKNOWN BIRTH CONTROL MEDICATION [Concomitant]
     Indication: CONTRACEPTION
  5. ENTOCORT EC [Concomitant]
     Indication: CROHN'S DISEASE
  6. PANTASA [Concomitant]
     Indication: CROHN'S DISEASE

REACTIONS (1)
  - BREAST MASS [None]
